FAERS Safety Report 19186197 (Version 1)
Quarter: 2021Q2

REPORT INFORMATION
  Report Type: Spontaneous
  Country: US (occurrence: US)
  Receive Date: 20210427
  Receipt Date: 20210427
  Transmission Date: 20210717
  Serious: No
  Sender: FDA-Public Use
  Company Number: US-ORGANON-O2104USA000121

PATIENT
  Sex: Female
  Weight: 51.25 kg

DRUGS (1)
  1. NEXPLANON [Suspect]
     Active Substance: ETONOGESTREL
     Indication: CONTRACEPTION
     Dosage: 1 IMPLANT,68 MILLIGRAM, LEFT UPPER ARM
     Route: 059
     Dates: start: 201910, end: 20210325

REACTIONS (2)
  - Device breakage [Recovered/Resolved]
  - Implant site irritation [Unknown]
